FAERS Safety Report 7993763-X (Version None)
Quarter: 2011Q4

REPORT INFORMATION
  Report Type: 
  Country: None (occurrence: None)
  Receive Date: 20111220
  Receipt Date: 20111215
  Transmission Date: 20120403
  Serious: No
  Sender: FDA-Public Use
  Company Number: US-BIOGENIDEC-2010BI032421

PATIENT
  Sex: Female

DRUGS (3)
  1. PNEUMONIA VACCINE [Concomitant]
     Dates: start: 20100101, end: 20100101
  2. FLU-IMUNE [Concomitant]
     Dates: start: 20110101, end: 20110101
  3. TYSABRI [Suspect]
     Indication: MULTIPLE SCLEROSIS
     Route: 042
     Dates: start: 20091217

REACTIONS (25)
  - FALL [None]
  - BALANCE DISORDER [None]
  - NECK PAIN [None]
  - DYSPHONIA [None]
  - MENSTRUAL DISORDER [None]
  - MUSCLE TWITCHING [None]
  - ASTHENIA [None]
  - PNEUMONIA [None]
  - LOSS OF CONSCIOUSNESS [None]
  - HYPOAESTHESIA [None]
  - MEMORY IMPAIRMENT [None]
  - TREMOR [None]
  - COORDINATION ABNORMAL [None]
  - DYSPEPSIA [None]
  - SUICIDAL IDEATION [None]
  - HEAD INJURY [None]
  - DEPRESSION [None]
  - BLEPHAROSPASM [None]
  - INFLUENZA [None]
  - LOSS OF CONTROL OF LEGS [None]
  - DYSARTHRIA [None]
  - MUSCULAR WEAKNESS [None]
  - NASOPHARYNGITIS [None]
  - HEADACHE [None]
  - DYSPNOEA [None]
